FAERS Safety Report 17105348 (Version 1)
Quarter: 2019Q4

REPORT INFORMATION
  Report Type: Spontaneous
  Country: US (occurrence: US)
  Receive Date: 20191203
  Receipt Date: 20191203
  Transmission Date: 20200122
  Serious: No
  Sender: FDA-Public Use
  Company Number: US-SA-2019SA333193

PATIENT
  Age: 87 Year
  Sex: Male

DRUGS (1)
  1. DUPIXENT [Suspect]
     Active Substance: DUPILUMAB
     Dosage: 300 MG OTHER
     Route: 058
     Dates: start: 201911, end: 20191126

REACTIONS (6)
  - Urticaria [Unknown]
  - Swelling face [Unknown]
  - Pruritus [Unknown]
  - Peripheral swelling [Unknown]
  - Drug eruption [Unknown]
  - Joint swelling [Unknown]

NARRATIVE: CASE EVENT DATE: 20191126
